FAERS Safety Report 4504182-2 (Version None)
Quarter: 2004Q4

REPORT INFORMATION
  Report Type: 
  Country: None (occurrence: None)
  Receive Date: 20041118
  Receipt Date: 20041108
  Transmission Date: 20050328
  Serious: Yes (Death)
  Sender: FDA-Public Use
  Company Number: JP-JNJFOC-20040302325

PATIENT
  Sex: Female

DRUGS (7)
  1. DUROTEP [Suspect]
     Indication: CANCER PAIN
     Route: 062
     Dates: start: 20031219, end: 20040127
  2. PROTEINS, AMINO ACID AND PREPARATIONS [Concomitant]
     Route: 041
  3. FAMOTIDINE [Concomitant]
     Route: 041
  4. MIXED VITAMIN PREPARATIONS [Concomitant]
     Route: 041
  5. MINERAL PREPARATIONS [Concomitant]
     Route: 041
  6. DICLOFENAC SODIUM [Concomitant]
     Route: 054
  7. FLUNITRAZEPAM [Concomitant]
     Route: 041

REACTIONS (1)
  - MALIGNANT NEOPLASM PROGRESSION [None]
